FAERS Safety Report 9220784 (Version 2)
Quarter: 2013Q2

REPORT INFORMATION
  Report Type: Report from Study
  Country: US (occurrence: US)
  Receive Date: 20130409
  Receipt Date: 20130506
  Transmission Date: 20140414
  Serious: Yes (Hospitalization, Other)
  Sender: FDA-Public Use
  Company Number: US-ACTELION-A-NJ2013-81806

PATIENT
  Age: 62 Year
  Sex: Male

DRUGS (2)
  1. VENTAVIS [Suspect]
     Indication: PULMONARY ARTERIAL HYPERTENSION
     Dosage: 5 MCG, 4-6X DAY
     Route: 055
     Dates: start: 2010
  2. SILDENAFIL [Concomitant]

REACTIONS (1)
  - Lung transplant [Unknown]
